FAERS Safety Report 9577011 (Version 1)
Quarter: 2013Q4

REPORT INFORMATION
  Report Type: Spontaneous
  Country: US (occurrence: US)
  Receive Date: 20131001
  Receipt Date: 20131001
  Transmission Date: 20140711
  Serious: No
  Sender: FDA-Public Use
  Company Number: US-AMGEN-USASP2013005692

PATIENT
  Age: 73 Year
  Sex: Female
  Weight: 108.84 kg

DRUGS (15)
  1. ENBREL [Suspect]
     Indication: PRODUCT USED FOR UNKNOWN INDICATION
     Dosage: 50 MG, QWK
     Route: 058
  2. HYZAAR [Concomitant]
     Dosage: 100-12.5
  3. PREDNISONE [Concomitant]
     Dosage: 1 MG, UNK
  4. ASTELIN                            /00085801/ [Concomitant]
     Dosage: 137 MUG, UNK
  5. VICODIN [Concomitant]
     Dosage: 5-300 MG, UNK
  6. CENTRUM SILVER                     /02363801/ [Concomitant]
     Dosage: UNK
  7. PROVENTIL HFA                      /00139501/ [Concomitant]
     Dosage: UNK
  8. LOVAZA [Concomitant]
     Dosage: 1 G, UNK
  9. PRILOSEC                           /00661201/ [Concomitant]
     Dosage: 10 MG, UNK
  10. LEVOTHROID [Concomitant]
     Dosage: 75 MUG, UNK
  11. CLARITIN                           /00413701/ [Concomitant]
     Dosage: 10 MG, UNK
  12. CALCIUM [Concomitant]
     Dosage: 500 UNK, UNK
  13. TYLENOL                            /00020001/ [Concomitant]
     Dosage: 325 MG, UNK
  14. ASA [Concomitant]
     Dosage: 81 MG, EC
  15. RIDAURA [Concomitant]
     Dosage: 3 MG, UNK

REACTIONS (2)
  - Local swelling [Unknown]
  - Joint swelling [Unknown]
